FAERS Safety Report 17052747 (Version 1)
Quarter: 2019Q4

REPORT INFORMATION
  Report Type: Spontaneous
  Country: US (occurrence: US)
  Receive Date: 20191119
  Receipt Date: 20191119
  Transmission Date: 20200122
  Serious: Yes (Hospitalization, Disabling)
  Sender: FDA-Public Use
  Company Number: None

PATIENT
  Age: 44 Year
  Weight: 104.85 kg

DRUGS (7)
  1. VISTARIL [Suspect]
     Active Substance: HYDROXYZINE PAMOATE
  2. HALDOL [Suspect]
     Active Substance: HALOPERIDOL
     Indication: SCHIZOAFFECTIVE DISORDER
  3. DEPAKOTE [Suspect]
     Active Substance: DIVALPROEX SODIUM
  4. SEROQUEL [Suspect]
     Active Substance: QUETIAPINE FUMARATE
  5. COGENTIN [Suspect]
     Active Substance: BENZTROPINE MESYLATE
  6. SYNTHROID [Concomitant]
     Active Substance: LEVOTHYROXINE SODIUM
  7. MULTI-VITAMIN [Concomitant]
     Active Substance: .ALPHA.-TOCOPHEROL ACETATE, DL-\ASCORBIC ACID\CYANOCOBALAMIN\FLUORIDE ION\FOLIC ACID\NIACIN\PYRIDOXINE\RIBOFLAVIN\THIAMINE\VITAMIN A\VITAMIN D

REACTIONS (7)
  - Hypersensitivity [None]
  - Anhedonia [None]
  - Nightmare [None]
  - Imprisonment [None]
  - Physical assault [None]
  - Aggression [None]
  - Hypersomnia [None]

NARRATIVE: CASE EVENT DATE: 20191119
